FAERS Safety Report 4936322-5 (Version None)
Quarter: 2006Q1

REPORT INFORMATION
  Report Type: 
  Country: None (occurrence: None)
  Receive Date: 20060127
  Receipt Date: 20051201
  Transmission Date: 20060701
  Serious: Yes (Other)
  Sender: FDA-Public Use
  Company Number: 2005164626

PATIENT
  Age: 81 Year
  Sex: Male
  Weight: 81.1939 kg

DRUGS (8)
  1. LYRICA [Suspect]
     Indication: NEUROPATHY PERIPHERAL
     Dosage: 150 MG (75 MG, 2 IN 1 D)
     Dates: start: 20051125
  2. GLIPIZIDE [Concomitant]
  3. UROCIT-K (POTASSIUM CITRATE) [Concomitant]
  4. ZOCOR [Concomitant]
  5. HYDROCHLOROTHIAZIDE [Concomitant]
  6. HYDROCODONE BITARTRATE [Concomitant]
  7. QUINAPRIL [Concomitant]
  8. ALPHA LIPOIC ACID (THIOCTIC ACID) [Concomitant]

REACTIONS (4)
  - BLOOD GLUCOSE INCREASED [None]
  - TREMOR [None]
  - UNEVALUABLE EVENT [None]
  - VISION BLURRED [None]
